FAERS Safety Report 5689768-4 (Version None)
Quarter: 2008Q1

REPORT INFORMATION
  Report Type: 
  Country: None (occurrence: None)
  Receive Date: 20080328
  Receipt Date: 20080312
  Transmission Date: 20080703
  Serious: Yes (Other)
  Sender: FDA-Public Use
  Company Number: 2008JP001108

PATIENT
  Age: 33 Year
  Sex: Male

DRUGS (2)
  1. PROGRAF [Suspect]
     Indication: BONE MARROW TRANSPLANT
     Dosage: 0.3 MG, ORAL
     Route: 048
  2. PREDNISOLONE [Concomitant]

REACTIONS (1)
  - ALVEOLAR PROTEINOSIS [None]
